FAERS Safety Report 11642685 (Version 1)
Quarter: 2015Q4

REPORT INFORMATION
  Report Type: Spontaneous
  Country: IN (occurrence: IN)
  Receive Date: 20151020
  Receipt Date: 20151020
  Transmission Date: 20160304
  Serious: Yes (Death)
  Sender: FDA-Public Use
  Company Number: IN-009507513-1510IND008185

PATIENT
  Age: 69 Year
  Sex: Male
  Weight: 48 kg

DRUGS (2)
  1. JANUVIA [Suspect]
     Active Substance: SITAGLIPTIN PHOSPHATE
     Indication: DIABETES MELLITUS
     Dosage: STRENGTH:50MG;1 DOSE
     Route: 048
  2. INSULIN HUMAN [Concomitant]
     Active Substance: INSULIN HUMAN
     Dosage: 2 TIMES IN A DAY

REACTIONS (1)
  - Renal disorder [Fatal]
